FAERS Safety Report 15962712 (Version 1)
Quarter: 2019Q1

REPORT INFORMATION
  Report Type: Spontaneous
  Country: US (occurrence: US)
  Receive Date: 20190214
  Receipt Date: 20190214
  Transmission Date: 20190417
  Serious: Yes (Other)
  Sender: FDA-Public Use
  Company Number: US-TEVA-2002-01674

PATIENT
  Age: 54 Year
  Sex: Male
  Weight: 81.63 kg

DRUGS (5)
  1. ZITHROMAX [Concomitant]
     Active Substance: AZITHROMYCIN DIHYDRATE
     Indication: EAR INFECTION
     Route: 048
  2. CLONAZEPAM (WATSON LABORATORIES) [Suspect]
     Active Substance: CLONAZEPAM
     Route: 048
     Dates: start: 2000
  3. AMOXICILLIN. [Concomitant]
     Active Substance: AMOXICILLIN
     Indication: EAR INFECTION
     Dosage: 3  DAILY;
     Route: 048
  4. HYDROCODONE BITARTRATE AND ACETAMINOPHEN [Suspect]
     Active Substance: ACETAMINOPHEN\HYDROCODONE BITARTRATE
     Indication: PAIN
     Dosage: 3  DAILY;
     Route: 048
     Dates: start: 2001
  5. NAPROXEN. [Concomitant]
     Active Substance: NAPROXEN
     Indication: PAIN
     Dosage: 2  DAILY;
     Route: 048
     Dates: start: 2001

REACTIONS (4)
  - Ear infection [None]
  - Dependence [Not Recovered/Not Resolved]
  - Tinnitus [Not Recovered/Not Resolved]
  - Incorrect product administration duration [None]

NARRATIVE: CASE EVENT DATE: 20020921
